FAERS Safety Report 19097689 (Version 1)
Quarter: 2021Q2

REPORT INFORMATION
  Report Type: Spontaneous
  Country: DE (occurrence: DE)
  Receive Date: 20210406
  Receipt Date: 20210406
  Transmission Date: 20210717
  Serious: Yes (Other)
  Sender: FDA-Public Use
  Company Number: DE-HRAPH01-2021000146

PATIENT
  Age: 29 Year
  Sex: Female
  Weight: 51 kg

DRUGS (1)
  1. ELLAONE [Suspect]
     Active Substance: ULIPRISTAL ACETATE
     Dosage: 30 MG
     Route: 048
     Dates: start: 20210315, end: 20210315

REACTIONS (6)
  - Adverse reaction [Recovering/Resolving]
  - Nausea [Recovering/Resolving]
  - Groin abscess [Recovering/Resolving]
  - Headache [Recovering/Resolving]
  - Acne [Recovering/Resolving]
  - Hidradenitis [Recovering/Resolving]

NARRATIVE: CASE EVENT DATE: 202103
